FAERS Safety Report 25215133 (Version 7)
Quarter: 2025Q2

REPORT INFORMATION
  Report Type: Spontaneous
  Country: AT (occurrence: AT)
  Receive Date: 20250418
  Receipt Date: 20250613
  Transmission Date: 20250717
  Serious: No
  Sender: PFIZER
  Company Number: AT-PFIZER INC-PV202500041564

PATIENT
  Sex: Female

DRUGS (1)
  1. GENOTROPIN [Suspect]
     Active Substance: SOMATROPIN

REACTIONS (3)
  - Device occlusion [Unknown]
  - Expired device used [Unknown]
  - Drug dose omission by device [Unknown]
